FAERS Safety Report 19463075 (Version 1)
Quarter: 2021Q2

REPORT INFORMATION
  Report Type: Spontaneous
  Country: JP (occurrence: JP)
  Receive Date: 20210625
  Receipt Date: 20210625
  Transmission Date: 20210717
  Serious: Yes (Life-Threatening, Hospitalization, Other)
  Sender: FDA-Public Use
  Company Number: JP-BRISTOL-MYERS SQUIBB COMPANY-BMS-2021-021606

PATIENT
  Age: 78 Year
  Sex: Male
  Weight: 65.5 kg

DRUGS (12)
  1. YERVOY [Suspect]
     Active Substance: IPILIMUMAB
     Indication: RENAL CELL CARCINOMA
     Dosage: 65.5 MILLIGRAM
     Route: 041
     Dates: start: 20200521, end: 20200722
  2. OPDIVO [Suspect]
     Active Substance: NIVOLUMAB
     Dosage: 240 MILLIGRAM
     Route: 041
     Dates: start: 20200811
  3. CEFTRIAXONE. [Suspect]
     Active Substance: CEFTRIAXONE
     Indication: PYREXIA
     Dosage: UNK
     Route: 042
     Dates: start: 20200813, end: 20200820
  4. YERVOY [Suspect]
     Active Substance: IPILIMUMAB
     Dosage: 65.5 MILLIGRAM
     Route: 041
     Dates: start: 20200722, end: 20200722
  5. OPDIVO [Suspect]
     Active Substance: NIVOLUMAB
     Dosage: 240 MILLIGRAM
     Route: 041
     Dates: start: 20200611
  6. YERVOY [Suspect]
     Active Substance: IPILIMUMAB
     Dosage: 65.5 MILLIGRAM
     Route: 041
     Dates: start: 20200702, end: 20200702
  7. OPDIVO [Suspect]
     Active Substance: NIVOLUMAB
     Indication: RENAL CELL CARCINOMA
     Dosage: 240 MILLIGRAM
     Route: 041
     Dates: start: 20200521, end: 20200722
  8. ENALAPRIL MALEATE. [Concomitant]
     Active Substance: ENALAPRIL MALEATE
     Indication: PRODUCT USED FOR UNKNOWN INDICATION
     Dosage: 5 MILLIGRAM, QD
     Route: 048
     Dates: end: 20210510
  9. ARTIST [Concomitant]
     Active Substance: CARVEDILOL
     Indication: PRODUCT USED FOR UNKNOWN INDICATION
     Dosage: 5 MILLIGRAM, BID
     Route: 048
     Dates: end: 20210510
  10. YERVOY [Suspect]
     Active Substance: IPILIMUMAB
     Dosage: 65.5 MILLIGRAM
     Route: 041
     Dates: start: 20200611, end: 20200611
  11. AMLODIPINE OD TYK [Concomitant]
     Active Substance: AMLODIPINE BESYLATE
     Indication: PRODUCT USED FOR UNKNOWN INDICATION
     Dosage: 5 MILLIGRAM, QD
     Route: 048
     Dates: end: 20210510
  12. OPDIVO [Suspect]
     Active Substance: NIVOLUMAB
     Dosage: 240 MILLIGRAM
     Route: 041
     Dates: start: 20200702

REACTIONS (11)
  - Blood pressure decreased [Recovering/Resolving]
  - Hypophysitis [Recovering/Resolving]
  - Staphylococcus test positive [Unknown]
  - Secondary adrenocortical insufficiency [Not Recovered/Not Resolved]
  - Rash [Recovered/Resolved]
  - Pyrexia [Unknown]
  - Pneumonia [Recovered/Resolved]
  - Condition aggravated [Recovering/Resolving]
  - Altered state of consciousness [Recovering/Resolving]
  - Hypothyroidism [Not Recovered/Not Resolved]
  - Tumour pseudoprogression [Unknown]

NARRATIVE: CASE EVENT DATE: 20200611
